FAERS Safety Report 16731204 (Version 4)
Quarter: 2021Q4

REPORT INFORMATION
  Report Type: Spontaneous
  Country: CA (occurrence: CA)
  Receive Date: 20190822
  Receipt Date: 20211230
  Transmission Date: 20220304
  Serious: Yes (Hospitalization, Disabling, Other)
  Sender: FDA-Public Use
  Company Number: CA-002147023-PHHY2019CA192974

PATIENT
  Age: 78 Year
  Sex: Female

DRUGS (64)
  1. DICLOFENAC SODIUM [Suspect]
     Active Substance: DICLOFENAC SODIUM
     Indication: Rheumatoid arthritis
     Dosage: UNK
     Route: 065
  2. IBUPROFEN [Suspect]
     Active Substance: IBUPROFEN
     Indication: Rheumatoid arthritis
     Dosage: UNK
     Route: 065
  3. VOLTAREN [Suspect]
     Active Substance: DICLOFENAC SODIUM
     Indication: Rheumatoid arthritis
     Dosage: UNK
     Route: 065
  4. VOLTAREN [Suspect]
     Active Substance: DICLOFENAC SODIUM
     Indication: Pain
  5. VOLTAREN [Suspect]
     Active Substance: DICLOFENAC SODIUM
     Indication: Mobility decreased
  6. VOLTAREN [Suspect]
     Active Substance: DICLOFENAC SODIUM
     Indication: Joint stiffness
  7. ASPIRIN [Suspect]
     Active Substance: ASPIRIN
     Indication: Rheumatoid arthritis
     Dosage: UNK (FILM-COATED TABLET)
     Route: 065
  8. ASPIRIN [Suspect]
     Active Substance: ASPIRIN
     Indication: Pain
     Dosage: UNK (FILM-COATED TABLET)
     Route: 065
  9. ASPIRIN [Suspect]
     Active Substance: ASPIRIN
     Indication: Mobility decreased
     Dosage: UNK (FILM-COATED TABLET)
     Route: 048
  10. ASPIRIN [Suspect]
     Active Substance: ASPIRIN
     Indication: Joint stiffness
     Dosage: UNK (FILM-COATED TABLET)UNK
     Route: 048
  11. VITAMIN C [Suspect]
     Active Substance: ASCORBIC ACID
     Indication: Mobility decreased
     Dosage: UNK
     Route: 065
  12. MOTRIN [Suspect]
     Active Substance: IBUPROFEN
     Indication: Rheumatoid arthritis
     Dosage: UNK
     Route: 065
  13. MOTRIN [Suspect]
     Active Substance: IBUPROFEN
     Indication: Pain
  14. MOTRIN [Suspect]
     Active Substance: IBUPROFEN
     Indication: Mobility decreased
  15. MOTRIN [Suspect]
     Active Substance: IBUPROFEN
     Indication: Joint stiffness
  16. CLOPIDOGREL [Suspect]
     Active Substance: CLOPIDOGREL BISULFATE
     Indication: Rheumatoid arthritis
     Dosage: UNK
     Route: 065
  17. CLOPIDOGREL [Suspect]
     Active Substance: CLOPIDOGREL BISULFATE
     Indication: Pain
  18. CLOPIDOGREL [Suspect]
     Active Substance: CLOPIDOGREL BISULFATE
     Indication: Mobility decreased
  19. CLOPIDOGREL [Suspect]
     Active Substance: CLOPIDOGREL BISULFATE
     Indication: Joint stiffness
  20. SULFAMETHOXAZOLE [Suspect]
     Active Substance: SULFAMETHOXAZOLE
     Indication: Rheumatoid arthritis
     Dosage: UNK
     Route: 065
  21. ARAVA [Suspect]
     Active Substance: LEFLUNOMIDE
     Indication: Rheumatoid arthritis
     Dosage: UNK
     Route: 048
  22. ARAVA [Suspect]
     Active Substance: LEFLUNOMIDE
     Indication: Pain
  23. ARAVA [Suspect]
     Active Substance: LEFLUNOMIDE
     Indication: Mobility decreased
  24. ARAVA [Suspect]
     Active Substance: LEFLUNOMIDE
     Indication: Joint stiffness
  25. ASPIRIN [Suspect]
     Active Substance: ASPIRIN
     Indication: Rheumatoid arthritis
     Dosage: 325 MG (DELAYED RELEASE)
     Route: 065
  26. METHOTREXATE [Suspect]
     Active Substance: METHOTREXATE
     Indication: Rheumatoid arthritis
     Dosage: UNK
     Route: 065
  27. ENBREL [Suspect]
     Active Substance: ETANERCEPT
     Indication: Rheumatoid arthritis
     Dosage: UNK
     Route: 058
  28. HUMIRA [Suspect]
     Active Substance: ADALIMUMAB
     Indication: Rheumatoid arthritis
     Dosage: UNK
     Route: 058
  29. HUMIRA [Suspect]
     Active Substance: ADALIMUMAB
     Indication: Pain
  30. HUMIRA [Suspect]
     Active Substance: ADALIMUMAB
     Indication: Mobility decreased
  31. HUMIRA [Suspect]
     Active Substance: ADALIMUMAB
     Indication: Joint stiffness
  32. PLAQUENIL [Suspect]
     Active Substance: HYDROXYCHLOROQUINE SULFATE
     Indication: Rheumatoid arthritis
     Dosage: UNK
     Route: 048
  33. PLAQUENIL [Suspect]
     Active Substance: HYDROXYCHLOROQUINE SULFATE
     Indication: Pain
  34. PLAQUENIL [Suspect]
     Active Substance: HYDROXYCHLOROQUINE SULFATE
     Indication: Mobility decreased
  35. PLAQUENIL [Suspect]
     Active Substance: HYDROXYCHLOROQUINE SULFATE
     Indication: Joint stiffness
  36. DICLOFENAC [Suspect]
     Active Substance: DICLOFENAC
     Indication: Rheumatoid arthritis
     Dosage: UNK
     Route: 061
  37. NAPROXEN [Suspect]
     Active Substance: NAPROXEN
     Indication: Rheumatoid arthritis
     Dosage: UNK
     Route: 065
  38. NAPROXEN [Suspect]
     Active Substance: NAPROXEN
     Indication: Pain
  39. NAPROXEN [Suspect]
     Active Substance: NAPROXEN
     Indication: Mobility decreased
  40. NAPROXEN [Suspect]
     Active Substance: NAPROXEN
     Indication: Joint stiffness
  41. PLAQUENIL [Suspect]
     Active Substance: HYDROXYCHLOROQUINE SULFATE
     Indication: Rheumatoid arthritis
     Dosage: UNK
     Route: 065
  42. HYDROXYCHLOROQUINE [Suspect]
     Active Substance: HYDROXYCHLOROQUINE
     Indication: Rheumatoid arthritis
     Dosage: UNK
     Route: 065
  43. HYDROXYCHLOROQUINE [Suspect]
     Active Substance: HYDROXYCHLOROQUINE
     Indication: Pain
     Dosage: UNK
     Route: 065
  44. HYDROXYCHLOROQUINE [Suspect]
     Active Substance: HYDROXYCHLOROQUINE
     Indication: Mobility decreased
     Dosage: UNK
     Route: 048
  45. HYDROXYCHLOROQUINE [Suspect]
     Active Substance: HYDROXYCHLOROQUINE
     Indication: Joint stiffness
     Dosage: UNK
     Route: 048
  46. TRIMETHOPRIM [Suspect]
     Active Substance: TRIMETHOPRIM
     Indication: Rheumatoid arthritis
     Dosage: UNK
     Route: 065
  47. GOLD [Suspect]
     Active Substance: GOLD
     Indication: Rheumatoid arthritis
     Dosage: UNK
     Route: 065
  48. GOLD [Suspect]
     Active Substance: GOLD
     Indication: Pain
  49. GOLD [Suspect]
     Active Substance: GOLD
     Indication: Mobility decreased
  50. GOLD [Suspect]
     Active Substance: GOLD
     Indication: Joint stiffness
  51. SULFAMETHOXAZOLE\TRIMETHOPRIM [Suspect]
     Active Substance: SULFAMETHOXAZOLE\TRIMETHOPRIM
     Indication: Rheumatoid arthritis
     Dosage: UNK
     Route: 065
  52. GOLD SODIUM THIOMALATE [Suspect]
     Active Substance: GOLD SODIUM THIOMALATE
     Indication: Rheumatoid arthritis
     Dosage: UNK
     Route: 065
  53. NAPROSYN [Suspect]
     Active Substance: NAPROXEN
     Indication: Rheumatoid arthritis
     Dosage: UNK
     Route: 065
  54. SULFATRIM [Suspect]
     Active Substance: SULFAMETHOXAZOLE\TRIMETHOPRIM
     Indication: Rheumatoid arthritis
     Dosage: UNK
     Route: 065
  55. SULFAMETHOXAZOLE\TRIMETHOPRIM [Suspect]
     Active Substance: SULFAMETHOXAZOLE\TRIMETHOPRIM
     Indication: Rheumatoid arthritis
     Dosage: UNK
     Route: 065
  56. ASPIRIN [Suspect]
     Active Substance: ASPIRIN
     Indication: Rheumatoid arthritis
     Dosage: UNK
     Route: 065
  57. TRAMADOL HYDROCHLORIDE [Suspect]
     Active Substance: TRAMADOL HYDROCHLORIDE
     Indication: Product used for unknown indication
     Dosage: UNK
     Route: 065
  58. GOLD SODIUM THIOMALATE [Suspect]
     Active Substance: GOLD SODIUM THIOMALATE
     Indication: Rheumatoid arthritis
     Dosage: UNK
     Route: 065
  59. GOLD SODIUM THIOMALATE [Suspect]
     Active Substance: GOLD SODIUM THIOMALATE
     Dosage: UNK
     Route: 051
  60. NAPROXEN [Concomitant]
     Active Substance: NAPROXEN
     Indication: Rheumatoid arthritis
     Route: 065
  61. METHOTREXATE [Concomitant]
     Active Substance: METHOTREXATE
     Indication: Rheumatoid arthritis
     Dosage: UNK
     Route: 065
  62. TRAMADOL HYDROCHLORIDE [Concomitant]
     Active Substance: TRAMADOL HYDROCHLORIDE
     Indication: Rheumatoid arthritis
     Dosage: UNK
     Route: 065
  63. DICLOFENAC POTASSIUM [Concomitant]
     Active Substance: DICLOFENAC POTASSIUM
     Indication: Rheumatoid arthritis
     Dosage: UNK
     Route: 065
  64. HYDROXYCHLOROQUINE [Concomitant]
     Active Substance: HYDROXYCHLOROQUINE
     Indication: Rheumatoid arthritis
     Dosage: UNK
     Route: 065

REACTIONS (25)
  - Abdominal discomfort [Unknown]
  - Abdominal pain upper [Unknown]
  - Arthropathy [Unknown]
  - Deafness [Unknown]
  - Deafness transitory [Recovered/Resolved]
  - Decreased appetite [Recovered/Resolved]
  - Dizziness [Recovered/Resolved]
  - Drug hypersensitivity [Unknown]
  - Ear infection [Recovered/Resolved]
  - Eating disorder [Unknown]
  - Feeding disorder [Unknown]
  - Functional gastrointestinal disorder [Unknown]
  - Gastrointestinal disorder [Unknown]
  - Gastrointestinal pain [Recovered/Resolved]
  - Headache [Recovered/Resolved]
  - Hypophagia [Recovered/Resolved]
  - Musculoskeletal disorder [Unknown]
  - Off label use [Unknown]
  - Nausea [Recovered/Resolved]
  - Pharyngitis [Recovered/Resolved]
  - Vomiting [Recovered/Resolved]
  - Weight decreased [Recovered/Resolved]
  - Adverse drug reaction [Not Recovered/Not Resolved]
  - Adverse reaction [Not Recovered/Not Resolved]
  - Abnormal loss of weight [Not Recovered/Not Resolved]
